FAERS Safety Report 9219724 (Version 1)
Quarter: 2013Q2

REPORT INFORMATION
  Report Type: Spontaneous
  Country: FR (occurrence: FR)
  Receive Date: 20130409
  Receipt Date: 20130409
  Transmission Date: 20140414
  Serious: Yes (Life-Threatening)
  Sender: FDA-Public Use
  Company Number: FR-ROCHE-1206346

PATIENT
  Age: 26 Year
  Sex: Female

DRUGS (1)
  1. ACTILYSE [Suspect]
     Indication: PULMONARY EMBOLISM
     Route: 042
     Dates: start: 20100818

REACTIONS (3)
  - Haemorrhage [Recovered/Resolved]
  - Premature labour [Recovered/Resolved]
  - Exposure during pregnancy [Unknown]
